FAERS Safety Report 6467334-0 (Version None)
Quarter: 2009Q4

REPORT INFORMATION
  Report Type: 
  Country: None (occurrence: None)
  Receive Date: 20091130
  Receipt Date: 20091110
  Transmission Date: 20100525
  Serious: No
  Sender: FDA-Public Use
  Company Number: C-09-0238

PATIENT
  Age: 67 Year
  Sex: Female
  Weight: 63.5036 kg

DRUGS (2)
  1. LINDANE [Suspect]
     Indication: ACARODERMATITIS
     Dosage: 30 ML 060
     Dates: start: 20091108
  2. LINDANE [Suspect]
     Indication: LICE INFESTATION
     Dosage: 30 ML 060
     Dates: start: 20091108

REACTIONS (5)
  - DRUG INEFFECTIVE [None]
  - FORMICATION [None]
  - HAIR COLOUR CHANGES [None]
  - LICE INFESTATION [None]
  - SKIN IRRITATION [None]
